FAERS Safety Report 9142817 (Version 1)
Quarter: 2013Q1

REPORT INFORMATION
  Report Type: Spontaneous
  Country: US (occurrence: US)
  Receive Date: 20130306
  Receipt Date: 20130306
  Transmission Date: 20140127
  Serious: No
  Sender: FDA-Public Use
  Company Number: US-BAYER-2013-025940

PATIENT
  Age: 87 Year
  Sex: Female
  Weight: 67.57 kg

DRUGS (2)
  1. ALEVE CAPLET/TABLET,MIDOL EXTENDED RELIEF CAPLET [Suspect]
     Indication: SCIATICA
     Dosage: 1 DF, BID
     Route: 048
     Dates: start: 20130219, end: 20130221
  2. ECOTRIN [Concomitant]

REACTIONS (3)
  - Nausea [Recovered/Resolved]
  - Pain [Not Recovered/Not Resolved]
  - Drug ineffective [None]
